FAERS Safety Report 22208064 (Version 2)
Quarter: 2023Q2

REPORT INFORMATION
  Report Type: Spontaneous
  Country: US (occurrence: US)
  Receive Date: 20230413
  Receipt Date: 20230428
  Transmission Date: 20230721
  Serious: Yes (Other)
  Sender: FDA-Public Use
  Company Number: US-TEVA-2023-US-2875544

PATIENT
  Age: 58 Year
  Sex: Female

DRUGS (19)
  1. ARIPIPRAZOLE [Suspect]
     Active Substance: ARIPIPRAZOLE
     Indication: Mood swings
     Dosage: DOSE UNKNOWN
     Route: 065
  2. ARIPIPRAZOLE [Suspect]
     Active Substance: ARIPIPRAZOLE
     Indication: Depression
  3. BUPROPION [Suspect]
     Active Substance: BUPROPION
     Indication: Mood swings
     Dosage: INITIAL DOSE UNKNOWN
     Route: 065
  4. BUPROPION [Suspect]
     Active Substance: BUPROPION
     Indication: Depression
     Dosage: 450 MILLIGRAM DAILY;
     Route: 065
  5. DULOXETINE [Suspect]
     Active Substance: DULOXETINE
     Indication: Mood swings
     Dosage: INITIAL DOSE UNKNOWN
     Route: 065
  6. DULOXETINE [Suspect]
     Active Substance: DULOXETINE
     Indication: Depression
     Dosage: 120 MILLIGRAM DAILY;
     Route: 065
  7. LAMOTRIGINE [Suspect]
     Active Substance: LAMOTRIGINE
     Indication: Mood swings
     Dosage: INITIAL DOSE UNKNOWN
     Route: 065
     Dates: start: 2016
  8. LAMOTRIGINE [Suspect]
     Active Substance: LAMOTRIGINE
     Indication: Depression
     Dosage: 300 MILLIGRAM DAILY; RECEIVED UP-TITRATED DOSE
     Route: 065
  9. LAMOTRIGINE [Suspect]
     Active Substance: LAMOTRIGINE
     Dosage: 325 MILLIGRAM DAILY; DOSE WAS FURTHER UP-TITRATED
     Route: 065
  10. LAMOTRIGINE [Suspect]
     Active Substance: LAMOTRIGINE
     Dosage: RESTARTED DOSE UNKNOWN
     Route: 065
  11. LAMOTRIGINE [Suspect]
     Active Substance: LAMOTRIGINE
     Dosage: 75 MILLIGRAM DAILY; RECEIVED UP-TITRATED DOSE
     Route: 065
  12. GABAPENTIN [Suspect]
     Active Substance: GABAPENTIN
     Indication: Mood swings
     Dosage: 3200 MILLIGRAM DAILY;
     Route: 065
  13. GABAPENTIN [Suspect]
     Active Substance: GABAPENTIN
     Indication: Depression
  14. TRAZODONE [Suspect]
     Active Substance: TRAZODONE HYDROCHLORIDE
     Indication: Mood swings
     Dosage: 50 MILLIGRAM DAILY; RECEIVED AT BEDTIME AS NEEDED
     Route: 065
  15. TRAZODONE [Suspect]
     Active Substance: TRAZODONE HYDROCHLORIDE
     Indication: Depression
  16. LITHIUM [Suspect]
     Active Substance: LITHIUM
     Indication: Mood swings
     Dosage: RECEIVED UNDER TRIAL
     Route: 065
  17. LITHIUM [Suspect]
     Active Substance: LITHIUM
     Indication: Depression
  18. VILAZODONE [Concomitant]
     Active Substance: VILAZODONE
     Indication: Mood swings
     Dosage: RECEIVED UNDER TRIAL
     Route: 065
  19. VILAZODONE [Concomitant]
     Active Substance: VILAZODONE
     Indication: Depression

REACTIONS (3)
  - Chorea [Recovered/Resolved]
  - Drug ineffective [Unknown]
  - Off label use [Unknown]
